FAERS Safety Report 5433668-1 (Version None)
Quarter: 2007Q3

REPORT INFORMATION
  Report Type: 
  Country: None (occurrence: None)
  Receive Date: 20070831
  Receipt Date: 20070622
  Transmission Date: 20080115
  Serious: No
  Sender: FDA-Public Use
  Company Number: A0659037A

PATIENT
  Age: 22 Year

DRUGS (2)
  1. ALLI [Suspect]
     Dates: start: 20070617, end: 20070617
  2. UNSPECIFIED MEDICATIONS [Concomitant]
     Indication: POST-TRAUMATIC STRESS DISORDER

REACTIONS (2)
  - ANXIETY [None]
  - PARANOIA [None]
